FAERS Safety Report 4343186-X (Version None)
Quarter: 2004Q2

REPORT INFORMATION
  Report Type: 
  Country: None (occurrence: None)
  Receive Date: 20040421
  Receipt Date: 20040413
  Transmission Date: 20050107
  Serious: Yes (Other)
  Sender: FDA-Public Use
  Company Number: PHBS2004BR05152

PATIENT

DRUGS (1)
  1. EXELON [Suspect]
     Route: 065

REACTIONS (2)
  - CARDIOMYOPATHY [None]
  - SYNCOPE [None]
